FAERS Safety Report 6788315-3 (Version None)
Quarter: 2010Q2

REPORT INFORMATION
  Report Type: 
  Country: None (occurrence: None)
  Receive Date: 20100623
  Receipt Date: 20080227
  Transmission Date: 20101027
  Serious: No
  Sender: FDA-Public Use
  Company Number: US-PFIZER INC-2008018182

PATIENT
  Sex: Male
  Weight: 37.7 kg

DRUGS (7)
  1. GEODON [Suspect]
     Indication: AUTISM
     Route: 048
     Dates: start: 20070401
  2. GEODON [Suspect]
     Indication: AGGRESSION
  3. GEODON [Suspect]
     Indication: MOOD SWINGS
  4. GEODON [Suspect]
     Indication: PSYCHOMOTOR HYPERACTIVITY
  5. STRATTERA [Concomitant]
  6. CLONIDINE [Concomitant]
  7. TRILEPTAL [Concomitant]

REACTIONS (2)
  - DRUG INEFFECTIVE [None]
  - INCORRECT DOSE ADMINISTERED [None]
